FAERS Safety Report 7332944-5 (Version None)
Quarter: 2011Q1

REPORT INFORMATION
  Report Type: 
  Country: None (occurrence: None)
  Receive Date: 20110304
  Receipt Date: 20110301
  Transmission Date: 20110831
  Serious: Yes (Death, Hospitalization)
  Sender: FDA-Public Use
  Company Number: US-PFIZER INC-2011008676

PATIENT
  Age: 80 Year
  Sex: Female
  Weight: 80 kg

DRUGS (3)
  1. HYDROXYUREA [Suspect]
     Dosage: 1500 MG PO 2X/DAY FOR PTS WITH WBC }= 10,000 MCL BEFORE STARTING AZACITIDINE
     Route: 048
     Dates: start: 20100428, end: 20100428
  2. MYLOTARG [Suspect]
     Indication: ACUTE MYELOID LEUKAEMIA
     Dosage: 3 MG/M2 IV OVER 2 HRS ON DAY 8
     Route: 042
     Dates: start: 20100513, end: 20100513
  3. AZACITIDINE [Suspect]
     Indication: ACUTE MYELOID LEUKAEMIA
     Dosage: 75 MG/M2/DOSE SC OR IV OVER 10-40 MIN ON DAYS 1-7
     Route: 058
     Dates: start: 20100506, end: 20100512

REACTIONS (7)
  - PULMONARY OEDEMA [None]
  - HYPOTENSION [None]
  - MYOCARDIAL ISCHAEMIA [None]
  - DISEASE PROGRESSION [None]
  - RESPIRATORY DISTRESS [None]
  - MYOCARDIAL INFARCTION [None]
  - ACUTE MYELOID LEUKAEMIA [None]
